FAERS Safety Report 6951366-X (Version None)
Quarter: 2010Q3

REPORT INFORMATION
  Report Type: 
  Country: None (occurrence: None)
  Receive Date: 20100828
  Receipt Date: 20100322
  Transmission Date: 20110219
  Serious: No
  Sender: FDA-Public Use
  Company Number: US-ABBOTT-10P-163-0634500-00

PATIENT
  Sex: Male
  Weight: 112.14 kg

DRUGS (6)
  1. NIASPAN [Suspect]
     Indication: HYPERLIPIDAEMIA
     Dosage: INCREASED
     Dates: start: 20091222, end: 20100101
  2. NIASPAN [Suspect]
  3. OPANA [Concomitant]
     Indication: PAIN
  4. NEXIUM [Concomitant]
     Indication: GASTROOESOPHAGEAL REFLUX DISEASE
  5. LISINOPRIL [Concomitant]
     Indication: HYPERTENSION
  6. HYDROCODONE BITARTRATE [Concomitant]
     Indication: PAIN

REACTIONS (2)
  - BLOOD CREATINE PHOSPHOKINASE INCREASED [None]
  - PHANTOM PAIN [None]
